FAERS Safety Report 5304226-4 (Version None)
Quarter: 2007Q2

REPORT INFORMATION
  Report Type: 
  Country: None (occurrence: None)
  Receive Date: 20070423
  Receipt Date: 20070416
  Transmission Date: 20071010
  Serious: Yes (Life-Threatening, Hospitalization, Other)
  Sender: FDA-Public Use
  Company Number: PHEH2006US12706

PATIENT
  Age: 62 Year
  Sex: Male

DRUGS (2)
  1. DIOVAN [Suspect]
     Indication: HYPERTENSION
     Dosage: UNK, UNK
  2. ACE INHIBITOR NOS [Suspect]
     Dosage: UNK, UNK

REACTIONS (5)
  - DRUG INTERACTION [None]
  - DYSPNOEA [None]
  - KNEE ARTHROPLASTY [None]
  - SWOLLEN TONGUE [None]
  - TRACHEOSTOMY [None]
